FAERS Safety Report 24981105 (Version 1)
Quarter: 2025Q1

REPORT INFORMATION
  Report Type: Spontaneous
  Country: US (occurrence: None)
  Receive Date: 20250217
  Receipt Date: 20250217
  Transmission Date: 20250409
  Serious: Yes (Hospitalization)
  Sender: FDA-CTU
  Company Number: None

PATIENT
  Sex: Female

DRUGS (9)
  1. PROCRIT [Suspect]
     Active Substance: ERYTHROPOIETIN
     Indication: Hypogammaglobulinaemia
     Dosage: OTHER FREQUENCY : EVERY 14 DAYS;?
     Route: 058
     Dates: start: 202109
  2. SOD CHLOR POSIFLUSH [Concomitant]
  3. SOLU-CORTEF ACTOVIAL [Concomitant]
  4. SODIUM CHLORIDE [Concomitant]
     Active Substance: SODIUM CHLORIDE
  5. PROCRIT [Concomitant]
     Active Substance: ERYTHROPOIETIN
  6. SOD CHLOR POS STERILE [Concomitant]
  7. HEPARIN L/L FLUSH SYRINGE [Concomitant]
  8. SDLIRIS SDV [Concomitant]
  9. GAMUNEX-C [Concomitant]
     Active Substance: HUMAN IMMUNOGLOBULIN G

REACTIONS (3)
  - Chest pain [None]
  - Renal failure [None]
  - Haemodialysis [None]
